FAERS Safety Report 5078610-0 (Version None)
Quarter: 2006Q3

REPORT INFORMATION
  Report Type: 
  Country: None (occurrence: None)
  Receive Date: 20060810
  Receipt Date: 20060810
  Transmission Date: 20061208
  Serious: Yes (Other)
  Sender: FDA-Public Use
  Company Number: None

PATIENT
  Age: 60 Year
  Sex: Male
  Weight: 66.2252 kg

DRUGS (1)
  1. ERBITUX [Suspect]
     Indication: COLON CANCER METASTATIC
     Dosage: PT RECEIVED 140 MG OF 1ST DOSE X1 IV DRIP
     Route: 041
     Dates: start: 20060807, end: 20060807

REACTIONS (6)
  - BLOOD PRESSURE DECREASED [None]
  - COLD SWEAT [None]
  - DYSARTHRIA [None]
  - INCONTINENCE [None]
  - INFUSION RELATED REACTION [None]
  - SKIN DISCOLOURATION [None]
